FAERS Safety Report 24548094 (Version 1)
Quarter: 2024Q4

REPORT INFORMATION
  Report Type: Report from Study
  Country: GB (occurrence: GB)
  Receive Date: 20241025
  Receipt Date: 20241025
  Transmission Date: 20250115
  Serious: Yes (Death, Other)
  Sender: AUROBINDO
  Company Number: GB-AUROBINDO-AUR-APL-2024-052256

PATIENT
  Age: 73 Year
  Sex: Female

DRUGS (2)
  1. CELECOXIB [Suspect]
     Active Substance: CELECOXIB
     Indication: Chemotherapy
     Dosage: 100 MILLIGRAM, DAILY
     Route: 065
  2. METHOTREXATE SODIUM [Suspect]
     Active Substance: METHOTREXATE SODIUM
     Indication: Chemotherapy
     Dosage: 15 MILLIGRAM, EVERY WEEK
     Route: 065

REACTIONS (2)
  - Metastasis [Fatal]
  - Condition aggravated [Unknown]
